FAERS Safety Report 7618573-4 (Version None)
Quarter: 2011Q3

REPORT INFORMATION
  Report Type: 
  Country: None (occurrence: None)
  Receive Date: 20110718
  Receipt Date: 20110713
  Transmission Date: 20111222
  Serious: Yes (Death)
  Sender: FDA-Public Use
  Company Number: PH-PFIZER INC-2011157808

PATIENT
  Age: 56 Year
  Sex: Female

DRUGS (1)
  1. TYGACIL [Suspect]
     Indication: PNEUMONIA
     Dosage: 2 VIALS

REACTIONS (1)
  - ARRHYTHMIA [None]
